FAERS Safety Report 4560289-5 (Version None)
Quarter: 2005Q1

REPORT INFORMATION
  Report Type: 
  Country: None (occurrence: None)
  Receive Date: 20050125
  Receipt Date: 20040909
  Transmission Date: 20050727
  Serious: Yes (Hospitalization)
  Sender: FDA-Public Use
  Company Number: US-AMGEN-KDL090640

PATIENT
  Sex: Female
  Weight: 70.4 kg

DRUGS (12)
  1. EPOGEN [Suspect]
     Indication: MYELODYSPLASTIC SYNDROME
     Route: 058
     Dates: start: 20020702
  2. PLAVIX [Concomitant]
  3. IRON [Concomitant]
  4. DIOVAN [Concomitant]
     Dates: start: 20030524, end: 20050102
  5. VICODIN [Concomitant]
  6. PROCARDIA [Concomitant]
     Route: 048
  7. FOLIC ACID [Concomitant]
  8. LIPITOR [Concomitant]
  9. SYNTHROID [Concomitant]
  10. LASIX [Concomitant]
  11. MINIPRESS [Concomitant]
     Dates: start: 20041126, end: 20041216
  12. CLONIDINE [Concomitant]
     Dates: start: 20050102

REACTIONS (10)
  - 5Q-SYNDROME [None]
  - CARDIAC FAILURE CONGESTIVE [None]
  - CONDITION AGGRAVATED [None]
  - DIVERTICULITIS [None]
  - HAEMOGLOBIN DECREASED [None]
  - HYPERTENSION [None]
  - HYPERTENSIVE CRISIS [None]
  - LABILE BLOOD PRESSURE [None]
  - RENAL ARTERY STENOSIS [None]
  - RENAL FAILURE [None]
